FAERS Safety Report 6903511-X (Version None)
Quarter: 2010Q3

REPORT INFORMATION
  Report Type: 
  Country: None (occurrence: None)
  Receive Date: 20100803
  Receipt Date: 20081031
  Transmission Date: 20110219
  Serious: Yes (Other)
  Sender: FDA-Public Use
  Company Number: US-PFIZER INC-2008079865

PATIENT
  Sex: Female

DRUGS (3)
  1. LYRICA [Suspect]
     Indication: FIBROMYALGIA
     Dates: start: 20080101
  2. HYDROCODONE BITARTRATE [Concomitant]
     Indication: PAIN
  3. WELLBUTRIN [Concomitant]

REACTIONS (4)
  - CYST [None]
  - NEOPLASM [None]
  - TREMOR [None]
  - VISION BLURRED [None]
